FAERS Safety Report 7509747-1 (Version None)
Quarter: 2011Q2

REPORT INFORMATION
  Report Type: 
  Country: None (occurrence: None)
  Receive Date: 20110527
  Receipt Date: 20110518
  Transmission Date: 20111010
  Serious: Yes (Hospitalization)
  Sender: FDA-Public Use
  Company Number: US-ASTRAZENECA-2011SE30567

PATIENT
  Age: 17 Year
  Sex: Male

DRUGS (2)
  1. SEROQUEL [Suspect]
     Indication: BIPOLAR DISORDER
     Route: 048
  2. SEROQUEL [Suspect]
     Dosage: WENT UP TO 300 TO 600 MG
     Route: 048

REACTIONS (13)
  - TESTICULAR PAIN [None]
  - HEART RATE INCREASED [None]
  - ABDOMINAL PAIN [None]
  - NAUSEA [None]
  - ALOPECIA [None]
  - BLOOD PRESSURE INCREASED [None]
  - PERIPHERAL COLDNESS [None]
  - TREMOR [None]
  - HEADACHE [None]
  - SOMNOLENCE [None]
  - DYSARTHRIA [None]
  - VISION BLURRED [None]
  - WEIGHT INCREASED [None]
